FAERS Safety Report 21080828 (Version 5)
Quarter: 2022Q4

REPORT INFORMATION
  Report Type: Spontaneous
  Country: US (occurrence: US)
  Receive Date: 20220714
  Receipt Date: 20221031
  Transmission Date: 20230113
  Serious: No
  Sender: FDA-Public Use
  Company Number: US-RECKITT BENCKISER HEALTHCARE INT LIMITED-RB-082003-2022

PATIENT
  Age: 69 Year
  Sex: Male

DRUGS (2)
  1. MUCINEX DM MAXIMUM STRENGTH [Suspect]
     Active Substance: DEXTROMETHORPHAN HYDROBROMIDE\GUAIFENESIN
     Indication: Secretion discharge
     Dosage: 1200 MILLIGRAM, QD
     Route: 048
     Dates: start: 20220101
  2. MUCINEX [Suspect]
     Active Substance: GUAIFENESIN
     Indication: Secretion discharge
     Dosage: 2400 MILLIGRAM, SINGLE
     Route: 048
     Dates: start: 202201

REACTIONS (2)
  - Dry mouth [Unknown]
  - Accidental overdose [Unknown]
